FAERS Safety Report 19911394 (Version 2)
Quarter: 2022Q1

REPORT INFORMATION
  Report Type: Other
  Country: CA (occurrence: CA)
  Receive Date: 20211004
  Receipt Date: 20220131
  Transmission Date: 20220423
  Serious: Yes (Death, Other)
  Sender: FDA-Public Use
  Company Number: CA-APOTEX-2021AP043369

PATIENT

DRUGS (9)
  1. DIPYRIDAMOLE [Suspect]
     Active Substance: DIPYRIDAMOLE
     Indication: Neoplasm
     Dosage: 100 MILLIGRAM/SQ. METER, QID
     Route: 048
  2. KETOCONAZOLE [Suspect]
     Active Substance: KETOCONAZOLE
     Indication: Neoplasm
     Dosage: 350 MILLIGRAM/SQ. METER, QD
     Route: 048
  3. METRONIDAZOLE [Suspect]
     Active Substance: METRONIDAZOLE
     Indication: Neoplasm
     Dosage: 750 MILLIGRAM/SQ. METER, QD
     Route: 048
  4. TAMOXIFEN [Suspect]
     Active Substance: TAMOXIFEN
     Indication: Neoplasm
     Dosage: 100 MILLIGRAM/SQ. METER, QD
     Route: 048
  5. CYCLOSPORINE [Suspect]
     Active Substance: CYCLOSPORINE
     Indication: Neoplasm
     Dosage: 150 MILLIGRAM/SQ. METER, BID
     Route: 048
  6. ETOPOSIDE [Suspect]
     Active Substance: ETOPOSIDE
     Indication: Neoplasm
     Dosage: 60 MILLIGRAM/SQ. METER, QD
     Route: 042
  7. ETOPOSIDE [Suspect]
     Active Substance: ETOPOSIDE
     Dosage: 75 MILLIGRAM, QD
     Route: 042
  8. METRONIDAZOLE [Suspect]
     Active Substance: METRONIDAZOLE
     Indication: Neoplasm
     Dosage: 250 MILLIGRAM/SQ. METER, QD
     Route: 054
  9. ETOPOSIDE PHOSPHATE [Suspect]
     Active Substance: ETOPOSIDE PHOSPHATE
     Indication: Neoplasm
     Dosage: 60 MILLIGRAM/SQ. METER, QD

REACTIONS (1)
  - Neutropenic sepsis [Fatal]
